FAERS Safety Report 5939927-8 (Version None)
Quarter: 2008Q4

REPORT INFORMATION
  Report Type: 
  Country: None (occurrence: None)
  Receive Date: 20081030
  Receipt Date: 20081030
  Transmission Date: 20090506
  Serious: No
  Sender: FDA-Public Use
  Company Number: None

PATIENT
  Sex: Female

DRUGS (2)
  1. ESTRADIOL/NORETHINDRONE 1.0MG/0.5MG [Suspect]
     Indication: CONVULSION
     Dosage: 1.0 MGJ/0.5 MG DAILY ORALLY
     Route: 048
     Dates: start: 20080529
  2. ESTRADIOL/NORETHINDRONE 1.0MG/0.5MG [Suspect]
     Indication: HOT FLUSH
     Dosage: 1.0 MGJ/0.5 MG DAILY ORALLY
     Route: 048
     Dates: start: 20080529

REACTIONS (2)
  - HOT FLUSH [None]
  - THERAPEUTIC RESPONSE UNEXPECTED WITH DRUG SUBSTITUTION [None]
